FAERS Safety Report 7416813-8 (Version None)
Quarter: 2011Q1

REPORT INFORMATION
  Report Type: 
  Country: None (occurrence: None)
  Receive Date: 20110302
  Receipt Date: 20101209
  Transmission Date: 20110831
  Serious: No
  Sender: FDA-Public Use
  Company Number: 023485

PATIENT
  Sex: Female

DRUGS (1)
  1. CIMZIA [Suspect]
     Dosage: 400 MG 1X4 WEEKS SUBCUTANEOUS
     Route: 058
     Dates: start: 20100708, end: 20100101

REACTIONS (1)
  - PREGNANCY [None]
